FAERS Safety Report 8197086-8 (Version None)
Quarter: 2012Q1

REPORT INFORMATION
  Report Type: 
  Country: None (occurrence: None)
  Receive Date: 20120309
  Receipt Date: 20120301
  Transmission Date: 20120608
  Serious: Yes (Other)
  Sender: FDA-Public Use
  Company Number: JP-ASTELLAS-2012JP001837

PATIENT
  Age: 51 Year
  Sex: Female

DRUGS (6)
  1. PROGRAF [Suspect]
     Indication: PROPHYLAXIS AGAINST TRANSPLANT REJECTION
     Route: 065
  2. FLUDARABINE PHOSPHATE [Concomitant]
     Dosage: 120 MG/M2, UNKNOWN/D
     Route: 065
  3. ZANAMIVIR [Concomitant]
     Indication: INFLUENZA
     Route: 065
  4. POLYGAM S/D [Concomitant]
     Route: 065
  5. METHOTREXATE [Concomitant]
     Route: 065
  6. OSELTAMIVIR [Concomitant]
     Indication: INFLUENZA
     Route: 065

REACTIONS (2)
  - GRAFT VERSUS HOST DISEASE IN SKIN [None]
  - DRUG INEFFECTIVE [None]
